FAERS Safety Report 10954911 (Version 2)
Quarter: 2015Q2

REPORT INFORMATION
  Report Type: Report from Study
  Country: BR (occurrence: BR)
  Receive Date: 20150325
  Receipt Date: 20150409
  Transmission Date: 20150821
  Serious: Yes (Other)
  Sender: FDA-Public Use
  Company Number: PHHY2015BR034753

PATIENT
  Age: 75 Year
  Sex: Female
  Weight: 69 kg

DRUGS (6)
  1. PROLOPA [Concomitant]
     Active Substance: BENSERAZIDE\LEVODOPA
     Indication: PARKINSON^S DISEASE
     Dosage: 4 DF, QD
     Route: 048
     Dates: start: 2000
  2. CALCIUM [Concomitant]
     Active Substance: CALCIUM
     Indication: OSTEOPENIA
     Dosage: 1 DF, QD
     Route: 048
     Dates: start: 2002
  3. NIAR [Concomitant]
     Indication: PARKINSON^S DISEASE
     Dosage: 2 DF, QD (1 YEAR AGO)
     Route: 048
  4. MANTIDAN [Concomitant]
     Active Substance: AMANTADINE HYDROCHLORIDE
     Indication: PARKINSON^S DISEASE
     Dosage: 2 DF, QD
     Route: 048
     Dates: start: 2000
  5. ACLASTA [Suspect]
     Active Substance: ZOLEDRONIC ACID
     Indication: OSTEOPOROSIS
     Dosage: 1 DF, ONCE A YEAR
     Route: 042
  6. SIFROL [Concomitant]
     Active Substance: PRAMIPEXOLE
     Indication: PARKINSON^S DISEASE
     Dosage: 3 DF, QD
     Route: 048
     Dates: start: 2000

REACTIONS (7)
  - Gait disturbance [Recovering/Resolving]
  - Bone pain [Recovered/Resolved]
  - Spinal disorder [Recovering/Resolving]
  - Body height decreased [Unknown]
  - Dyskinesia [Recovering/Resolving]
  - Feeling hot [Recovering/Resolving]
  - Arthralgia [Recovered/Resolved]

NARRATIVE: CASE EVENT DATE: 20150115
